APPROVED DRUG PRODUCT: ETHACRYNIC ACID
Active Ingredient: ETHACRYNIC ACID
Strength: 25MG
Dosage Form/Route: TABLET;ORAL
Application: A208501 | Product #001
Applicant: PH HEALTH LTD
Approved: Jul 21, 2017 | RLD: No | RS: No | Type: DISCN